FAERS Safety Report 8197178-3 (Version None)
Quarter: 2012Q1

REPORT INFORMATION
  Report Type: 
  Country: None (occurrence: None)
  Receive Date: 20120309
  Receipt Date: 20120302
  Transmission Date: 20120608
  Serious: Yes (Hospitalization)
  Sender: FDA-Public Use
  Company Number: CL-JNJFOC-20120202652

PATIENT
  Sex: Female
  Weight: 68.3 kg

DRUGS (13)
  1. FOLIC ACID [Concomitant]
     Dates: start: 20051104
  2. PREDNISONE [Concomitant]
     Dates: start: 20111026
  3. METHOTREXATE [Concomitant]
     Route: 048
     Dates: start: 20090520, end: 20091028
  4. METHOTREXATE [Concomitant]
     Route: 048
     Dates: start: 20080618, end: 20090513
  5. NIFEDIPINE [Concomitant]
     Route: 048
     Dates: start: 20080909
  6. METHOTREXATE [Suspect]
     Indication: RHEUMATOID ARTHRITIS
     Route: 048
     Dates: start: 20080402, end: 20080611
  7. GOLIMUMAB [Suspect]
     Indication: RHEUMATOID ARTHRITIS
     Route: 058
     Dates: start: 20120126
  8. METHOTREXATE [Concomitant]
     Route: 048
     Dates: start: 20091104
  9. CALCIUM CARBONATE AND VITAMIN D [Concomitant]
     Dates: start: 20090901
  10. GOLIMUMAB [Suspect]
     Route: 058
     Dates: start: 20070913
  11. PLACEBO [Suspect]
     Indication: RHEUMATOID ARTHRITIS
     Route: 058
     Dates: start: 20070528
  12. IBUPROFEN [Concomitant]
     Route: 048
     Dates: start: 20111201
  13. OMEPRAZOLE [Concomitant]
     Route: 048
     Dates: start: 20080910

REACTIONS (1)
  - CELLULITIS [None]
